FAERS Safety Report 12517213 (Version 1)
Quarter: 2016Q2

REPORT INFORMATION
  Report Type: Report from Study
  Country: AU (occurrence: AU)
  Receive Date: 20160630
  Receipt Date: 20160630
  Transmission Date: 20160815
  Serious: Yes (Other)
  Sender: FDA-Public Use
  Company Number: AU-CELGENEUS-008-21880-13110608

PATIENT
  Age: 70 Year
  Sex: Female
  Weight: 65.7 kg

DRUGS (8)
  1. PARACETAMOL [Concomitant]
     Active Substance: ACETAMINOPHEN
     Indication: NASOPHARYNGITIS
     Route: 065
     Dates: start: 20130810, end: 20150818
  2. REVLIMID [Suspect]
     Active Substance: LENALIDOMIDE
     Indication: DIFFUSE LARGE B-CELL LYMPHOMA
     Route: 048
     Dates: start: 20120103, end: 20131224
  3. ASPIRINE [Concomitant]
     Active Substance: ASPIRIN
     Indication: PRODUCT USED FOR UNKNOWN INDICATION
     Route: 065
  4. ADVANTAN [Concomitant]
     Active Substance: CORTICOSTEROID NOS
     Indication: RASH
     Route: 065
     Dates: start: 20130326
  5. DICLOFENAC [Concomitant]
     Active Substance: DICLOFENAC
     Indication: ARTHRALGIA
     Dosage: 3%GEL
     Route: 061
     Dates: start: 20130326
  6. PHENYLEPHRINE HYDROCHLORIDE. [Concomitant]
     Active Substance: PHENYLEPHRINE HYDROCHLORIDE
     Indication: NASOPHARYNGITIS
     Route: 065
     Dates: start: 20130810, end: 20150818
  7. OPCXTRA (SUPER ANTIOXIDANT) [Concomitant]
     Indication: NUTRITIONAL SUPPLEMENTATION
     Route: 065
     Dates: start: 20130122
  8. IMIGRAN [Concomitant]
     Active Substance: SUMATRIPTAN SUCCINATE
     Indication: HEADACHE
     Route: 065
     Dates: start: 20131106, end: 20151106

REACTIONS (3)
  - Squamous cell carcinoma of skin [Recovered/Resolved]
  - Keratoacanthoma [Recovered/Resolved]
  - Keratoacanthoma [Recovered/Resolved]

NARRATIVE: CASE EVENT DATE: 20130130
